FAERS Safety Report 8441592 (Version 3)
Quarter: 2012Q4

REPORT INFORMATION
  Report Type: 
  Country: US (occurrence: US)
  Receive Date: 20120305
  Receipt Date: 20120904
  Transmission Date: 20130627
  Serious: Yes (Hospitalization, Other)
  Sender: FDA-Public Use
  Company Number: US-PFIZER INC-2012054510

PATIENT
  Age: 85 Year
  Sex: Male

DRUGS (1)
  1. AZITHROMYCIN [Suspect]
     Dosage: UNK

REACTIONS (4)
  - Jaundice cholestatic [Recovering/Resolving]
  - Liver injury [Unknown]
  - Diarrhoea [Unknown]
  - Weight decreased [Unknown]
